FAERS Safety Report 7771539-6 (Version None)
Quarter: 2011Q3

REPORT INFORMATION
  Report Type: 
  Country: None (occurrence: None)
  Receive Date: 20110922
  Receipt Date: 20100810
  Transmission Date: 20111222
  Serious: No
  Sender: FDA-Public Use
  Company Number: US-ASTRAZENECA-2007UW25226

PATIENT
  Age: 20245 Day
  Sex: Female
  Weight: 73.5 kg

DRUGS (18)
  1. ALBUTEROL [Concomitant]
     Dosage: 90 MCG
     Dates: start: 20060521
  2. SEROQUEL [Suspect]
     Route: 048
     Dates: start: 20060323
  3. SEROQUEL [Suspect]
     Indication: ANXIETY
     Dosage: 25 MG TO 100 MG
     Route: 048
     Dates: start: 20040101, end: 20070101
  4. FLUTICASONE PROPIONATE [Concomitant]
     Dosage: 50 MCG
     Dates: start: 20060403
  5. SEROQUEL [Suspect]
     Route: 048
     Dates: start: 20060323
  6. EFFEXOR [Concomitant]
     Dates: start: 20050101, end: 20060101
  7. SEROQUEL [Suspect]
     Indication: DEPRESSION
     Dosage: 25 MG TO 100 MG
     Route: 048
     Dates: start: 20040101, end: 20070101
  8. SEROQUEL [Suspect]
     Dosage: 25MG TO 100 MG
     Route: 048
     Dates: start: 20040629, end: 20060326
  9. ZOLOFT [Concomitant]
     Dates: start: 20060513
  10. NASONEX [Concomitant]
     Dosage: 50 MCG
     Dates: start: 20060510
  11. DIAZEPAM [Concomitant]
     Dates: start: 20060413
  12. RISPERDAL [Concomitant]
     Indication: SLEEP DISORDER
     Dates: start: 20040324
  13. LEXAPRO [Concomitant]
     Dosage: 10 MG-20 MG
     Dates: start: 20060323
  14. METHYLPREDNISOLONE [Concomitant]
     Dates: start: 20060405
  15. RANITIDINE [Concomitant]
     Dates: start: 20060428
  16. SEROQUEL [Suspect]
     Dosage: 25MG TO 100 MG
     Route: 048
     Dates: start: 20040629, end: 20060326
  17. DOXEPIN [Concomitant]
     Dates: start: 20060503
  18. ALBUTEROL [Concomitant]
     Dosage: 0.83 MG/ML
     Dates: start: 20060510

REACTIONS (1)
  - DIABETES MELLITUS [None]
